FAERS Safety Report 23389279 (Version 1)
Quarter: 2024Q1

REPORT INFORMATION
  Report Type: Spontaneous
  Country: US (occurrence: US)
  Receive Date: 20240110
  Receipt Date: 20240110
  Transmission Date: 20240409
  Serious: No
  Sender: FDA-Public Use
  Company Number: US-REGENERON PHARMACEUTICALS, INC.-2023-011520

PATIENT
  Age: 45 Year
  Sex: Male

DRUGS (3)
  1. EYLEA [Suspect]
     Active Substance: AFLIBERCEPT
     Indication: Diabetic retinopathy
     Dosage: 2MG; EVERY 4 WEEKS (INTO RIGHT EYE); FORMULATION: VIAL
     Dates: start: 20220117, end: 20220708
  2. EYLEA [Suspect]
     Active Substance: AFLIBERCEPT
     Dosage: 2MG; AS NEEDED (INTO LEFT EYE); FORMULATION: VIAL
     Dates: start: 20220117, end: 20220708
  3. EYLEA [Suspect]
     Active Substance: AFLIBERCEPT
     Dosage: 2MG, UNSPECIFIED FREQUENCY AND EYE, FORMULATION: VIAL
     Dates: start: 20221209

REACTIONS (1)
  - Product dose omission issue [Recovered/Resolved]

NARRATIVE: CASE EVENT DATE: 20220722
